FAERS Safety Report 20814156 (Version 1)
Quarter: 2022Q2

REPORT INFORMATION
  Report Type: Other
  Country: None (occurrence: IN)
  Receive Date: 20220511
  Receipt Date: 20220511
  Transmission Date: 20220721
  Serious: Yes (Death, Life-Threatening, Hospitalization)
  Sender: FDA-Public Use
  Company Number: IN-Jacobus Pharmaceutical Company, Inc.-2128675

PATIENT
  Age: 27 Year
  Sex: Female

DRUGS (2)
  1. DAPSONE [Suspect]
     Active Substance: DAPSONE
     Indication: Acne
  2. Herbal Medicines Unspecified [Concomitant]

REACTIONS (35)
  - Pyrexia [Fatal]
  - Chills [Fatal]
  - Vomiting [Fatal]
  - Diarrhoea [Fatal]
  - Abdominal pain upper [Fatal]
  - Gingival bleeding [Fatal]
  - Swelling face [Fatal]
  - Swelling [Fatal]
  - Septic shock [Fatal]
  - C-reactive protein increased [Fatal]
  - Blood glucose increased [Fatal]
  - Metabolic acidosis [Fatal]
  - Pyuria [Fatal]
  - Haematuria [Fatal]
  - Albuminuria [Fatal]
  - Occult blood positive [Fatal]
  - Blood thyroid stimulating hormone increased [Fatal]
  - Blood albumin decreased [Fatal]
  - Alanine aminotransferase increased [Fatal]
  - Blood bilirubin increased [Fatal]
  - Lymphadenopathy [Fatal]
  - Atelectasis [Fatal]
  - Urosepsis [Fatal]
  - Necrotising fasciitis [Fatal]
  - Gastroenteritis [Fatal]
  - Pancytopenia [Fatal]
  - Neutropenia [Fatal]
  - Multiple organ dysfunction syndrome [Fatal]
  - Hypoxia [Fatal]
  - Lung infiltration [Fatal]
  - Bradycardia [Fatal]
  - Hypotension [Fatal]
  - Cardiac arrest [Fatal]
  - Supraventricular tachycardia [Fatal]
  - Cardio-respiratory arrest [Fatal]
